FAERS Safety Report 4332941-8 (Version None)
Quarter: 2004Q1

REPORT INFORMATION
  Report Type: 
  Country: None (occurrence: None)
  Receive Date: 20040330
  Receipt Date: 20040323
  Transmission Date: 20041129
  Serious: Yes (Hospitalization)
  Sender: FDA-Public Use
  Company Number: 2004UW04485

PATIENT
  Age: 68 Year
  Sex: Female
  Weight: 68.9467 kg

DRUGS (1)
  1. CRESTOR [Suspect]
     Indication: BLOOD CHOLESTEROL INCREASED
     Dosage: 10 MG PO
     Route: 048
     Dates: start: 20040120, end: 20040301

REACTIONS (4)
  - AGITATION [None]
  - BLOOD PRESSURE INCREASED [None]
  - DIZZINESS [None]
  - SHOCK [None]
